FAERS Safety Report 24062061 (Version 1)
Quarter: 2024Q3

REPORT INFORMATION
  Report Type: Spontaneous
  Country: US (occurrence: None)
  Receive Date: 20240708
  Receipt Date: 20240708
  Transmission Date: 20241017
  Serious: Yes (Hospitalization)
  Sender: Public
  Company Number: None

PATIENT
  Age: 70 Year
  Sex: Female
  Weight: 106.6 kg

DRUGS (6)
  1. DARATUMUMAB\HYALURONIDASE-FIHJ [Suspect]
     Active Substance: DARATUMUMAB\HYALURONIDASE-FIHJ
  2. DEXAMETHASONE [Concomitant]
  3. LENALIDOMIDE [Concomitant]
     Active Substance: LENALIDOMIDE
  4. ACETAMINOPHEN [Concomitant]
  5. Aspirin [Concomitant]
  6. IBUPROFEN [Concomitant]

REACTIONS (4)
  - Dyspnoea [None]
  - Heart rate increased [None]
  - Therapy interrupted [None]
  - Pulmonary embolism [None]

NARRATIVE: CASE EVENT DATE: 20240531
